FAERS Safety Report 4681942-9 (Version None)
Quarter: 2005Q2

REPORT INFORMATION
  Report Type: 
  Country: None (occurrence: None)
  Receive Date: 20050602
  Receipt Date: 20050524
  Transmission Date: 20051028
  Serious: Yes (Death, Hospitalization)
  Sender: FDA-Public Use
  Company Number: GXKR2005SE01104

PATIENT
  Age: 53 Year
  Sex: Female

DRUGS (10)
  1. RIFAMPICIN [Suspect]
     Indication: TUBERCULOSIS
     Dosage: 300 MG, UNK
     Dates: start: 20041020, end: 20041121
  2. PYRAZINAMIDE (NGX) (PYRAZINAMIDE) UNKNOWN [Suspect]
     Indication: TUBERCULOSIS
     Dosage: 2 G, UNK
     Dates: start: 20041020, end: 20041121
  3. TIBINIDE (ISONIAZID) [Suspect]
     Indication: TUBERCULOSIS
     Dosage: 600 MG, UNK
     Dates: start: 20041020, end: 20041121
  4. OMNIPAQUE (OHEXOL) [Suspect]
     Dosage: 140, UNK
     Dates: start: 20041119
  5. ACETAMINOPHEN [Concomitant]
  6. ISOPTO-MAXIDEX (DEXAMETHASONE) [Concomitant]
  7. ISOPTO-ATROPIN (ATROPINE SULFATE) [Concomitant]
  8. PYRIDOXINE (PYRIDOXINE) [Concomitant]
  9. CYCLABIL (ESTRADIOL VALERATE, LEVONOREGESTREL) [Concomitant]
  10. NEXIUM [Concomitant]

REACTIONS (6)
  - BACK PAIN [None]
  - C-REACTIVE PROTEIN INCREASED [None]
  - HEPATIC FAILURE [None]
  - PROCEDURAL COMPLICATION [None]
  - PYREXIA [None]
  - URTICARIA [None]
